FAERS Safety Report 12578149 (Version 1)
Quarter: 2016Q3

REPORT INFORMATION
  Report Type: Spontaneous
  Country: US (occurrence: None)
  Receive Date: 20160720
  Receipt Date: 20160720
  Transmission Date: 20161109
  Serious: Yes (Disabling)
  Sender: FDA-Public Use
  Company Number: None

PATIENT
  Age: 50 Year
  Sex: Female
  Weight: 65.77 kg

DRUGS (3)
  1. FORFIVO XL [Concomitant]
     Active Substance: BUPROPION HYDROCHLORIDE
  2. IMMIQUIMOD [Suspect]
     Active Substance: IMIQUIMOD
  3. ADVIL [Concomitant]
     Active Substance: IBUPROFEN

REACTIONS (5)
  - Dry mouth [None]
  - Nausea [None]
  - Abdominal distension [None]
  - Vertigo [None]
  - Nasal congestion [None]

NARRATIVE: CASE EVENT DATE: 20160615
